FAERS Safety Report 15538743 (Version 8)
Quarter: 2022Q2

REPORT INFORMATION
  Report Type: Spontaneous
  Country: US (occurrence: US)
  Receive Date: 20181022
  Receipt Date: 20220617
  Transmission Date: 20220721
  Serious: Yes (Death, Other)
  Sender: FDA-Public Use
  Company Number: US-SA-2018SA291249

PATIENT
  Age: 71 Year
  Sex: Female

DRUGS (1)
  1. KEVZARA [Suspect]
     Active Substance: SARILUMAB
     Indication: Rheumatoid arthritis
     Dosage: 200 MG, QOW
     Route: 058
     Dates: start: 201808

REACTIONS (7)
  - Death [Fatal]
  - Psoriatic arthropathy [Unknown]
  - Joint injury [Unknown]
  - Nasal congestion [Unknown]
  - Nerve compression [Unknown]
  - Limb injury [Unknown]
  - Bronchitis [Unknown]

NARRATIVE: CASE EVENT DATE: 20180101
